FAERS Safety Report 24793958 (Version 1)
Quarter: 2024Q4

REPORT INFORMATION
  Report Type: Spontaneous
  Country: US (occurrence: None)
  Receive Date: 20241230
  Receipt Date: 20241230
  Transmission Date: 20250115
  Serious: Yes (Other)
  Sender: Public
  Company Number: None

PATIENT
  Age: 17 Year
  Sex: Female
  Weight: 63.3 kg

DRUGS (13)
  1. DOXYCYCLINE [Suspect]
     Active Substance: DOXYCYCLINE
     Indication: Acne
     Dosage: OTHER QUANTITY : 1 CAPSULE(S);?FREQUENCY : TWICE A DAY;?
     Route: 048
     Dates: start: 20241216, end: 20241226
  2. tacrolimus 0.1 % ointment [Concomitant]
  3. cetirizine 10 mg tablet, [Concomitant]
  4. Symbicort 80-4.5 mcg/actuation inhaler, [Concomitant]
  5. XYZAL [Concomitant]
     Active Substance: LEVOCETIRIZINE DIHYDROCHLORIDE
  6. Retin-A 0.025 % cream, [Concomitant]
  7. mometasone 0.1 % cream, [Concomitant]
  8. adapalene-benzoyl peroxide 0.1-2.5 % gel [Concomitant]
  9. ketoconazole 2 % shampoo, [Concomitant]
  10. CLINDAMYCIN 1 A PHARMA [Concomitant]
  11. Aerochamber Max with Flow-VU inhaler [Concomitant]
  12. triamcinolone 0.025 % cream [Concomitant]
  13. ACETAMINOPHEN [Concomitant]
     Active Substance: ACETAMINOPHEN

REACTIONS (6)
  - Headache [None]
  - Lymphadenopathy [None]
  - Therapy cessation [None]
  - Rash [None]
  - Neck pain [None]
  - Discomfort [None]

NARRATIVE: CASE EVENT DATE: 20241222
